FAERS Safety Report 9744583 (Version 2)
Quarter: 2014Q1

REPORT INFORMATION
  Report Type: Spontaneous
  Country: US (occurrence: US)
  Receive Date: 20131210
  Receipt Date: 20140122
  Transmission Date: 20141002
  Serious: Yes (Hospitalization)
  Sender: FDA-Public Use
  Company Number: US-ACORDA-ACO_100706_2013

PATIENT
  Age: 70 Year
  Sex: Male

DRUGS (1)
  1. AMPYRA [Suspect]
     Indication: PRODUCT USED FOR UNKNOWN INDICATION
     Dosage: UNK
     Route: 065

REACTIONS (11)
  - Pulmonary embolism [Unknown]
  - Dyspnoea [Unknown]
  - Anaemia [Unknown]
  - Dehydration [Unknown]
  - Hyponatraemia [Unknown]
  - Joint swelling [Unknown]
  - Abdominal pain lower [Unknown]
  - Anxiety [Unknown]
  - Vomiting [Unknown]
  - Nausea [Unknown]
  - Rash [Unknown]
